FAERS Safety Report 21298171 (Version 1)
Quarter: 2022Q3

REPORT INFORMATION
  Report Type: Spontaneous
  Country: CN (occurrence: CN)
  Receive Date: 20220906
  Receipt Date: 20220906
  Transmission Date: 20221027
  Serious: Yes (Other)
  Sender: FDA-Public Use
  Company Number: CN-PFIZER INC-PV202200055778

PATIENT
  Age: 72 Year
  Sex: Male
  Weight: 50 kg

DRUGS (3)
  1. VFEND [Suspect]
     Active Substance: VORICONAZOLE
     Indication: Fungal infection
     Dosage: 200 MG, 2X/DAY
     Route: 041
     Dates: start: 20220815, end: 20220815
  2. VORICONAZOLE [Suspect]
     Active Substance: VORICONAZOLE
     Indication: Fungal infection
     Dosage: 400 MG, 1X/DAY
     Route: 041
     Dates: start: 20220814, end: 20220814
  3. SODIUM CHLORIDE [Concomitant]
     Active Substance: SODIUM CHLORIDE
     Indication: Vehicle solution use
     Dosage: 100 ML, 3X/DAY
     Route: 041
     Dates: start: 20220814, end: 20220815

REACTIONS (2)
  - Mental disorder [Recovering/Resolving]
  - Incoherent [Recovering/Resolving]

NARRATIVE: CASE EVENT DATE: 20220815
